FAERS Safety Report 9120209 (Version 3)
Quarter: 2013Q2

REPORT INFORMATION
  Report Type: Spontaneous
  Country: US (occurrence: US)
  Receive Date: 20130226
  Receipt Date: 20130417
  Transmission Date: 20140414
  Serious: No
  Sender: FDA-Public Use
  Company Number: US-PFIZER INC-2013067891

PATIENT
  Age: 61 Year
  Sex: Female

DRUGS (2)
  1. INLYTA [Suspect]
     Indication: RENAL CANCER
     Dosage: 7 MG, 2X/DAY
     Dates: start: 20130130
  2. INLYTA [Suspect]
     Indication: HEPATIC CANCER
     Dosage: UNK

REACTIONS (4)
  - Disease progression [Unknown]
  - Renal cancer [Unknown]
  - Hepatic cancer [Unknown]
  - Toxicity to various agents [Unknown]
